FAERS Safety Report 6548109-0 (Version None)
Quarter: 2010Q1

REPORT INFORMATION
  Report Type: 
  Country: None (occurrence: None)
  Receive Date: 20100124
  Receipt Date: 20090211
  Transmission Date: 20100710
  Serious: No
  Sender: FDA-Public Use
  Company Number: US-ALLERGAN-0809777US

PATIENT
  Age: 57 Year
  Sex: Female

DRUGS (10)
  1. RESTASIS [Suspect]
     Indication: DRY EYE
     Dosage: 1 GTT, UNKNOWN
     Route: 047
  2. STEROIDS [Concomitant]
     Indication: EYE INFLAMMATION
     Dosage: UNK, UNK
     Route: 047
  3. LOTEMAX [Concomitant]
     Indication: EYE INFLAMMATION
     Dosage: UNK, UNK
     Route: 047
  4. ARTIFICIAL TEARS [Concomitant]
     Dosage: UNK, UNK
     Route: 047
  5. EYE DROPS [Concomitant]
     Dosage: UNK, UNK
     Route: 047
  6. EYE OINTMENTS [Concomitant]
     Dosage: UNK, UNK
     Route: 047
  7. XALATAN [Concomitant]
     Indication: GLAUCOMA
  8. XALATAN [Concomitant]
     Indication: INTRAOCULAR PRESSURE TEST
  9. MURO-128 [Concomitant]
     Indication: DRY EYE
  10. MURO-128 [Concomitant]
     Indication: OEDEMA

REACTIONS (6)
  - DIPLOPIA [None]
  - DRUG INEFFECTIVE [None]
  - DRY EYE [None]
  - EYE PAIN [None]
  - LACRIMATION INCREASED [None]
  - OCULAR DISCOMFORT [None]
